FAERS Safety Report 6682484-1 (Version None)
Quarter: 2010Q2

REPORT INFORMATION
  Report Type: 
  Country: None (occurrence: None)
  Receive Date: 20100415
  Receipt Date: 20100413
  Transmission Date: 20101027
  Serious: Yes (Hospitalization)
  Sender: FDA-Public Use
  Company Number: BE-SANOFI-AVENTIS-2010SA018639

PATIENT
  Age: 58 Year
  Sex: Male
  Weight: 58 kg

DRUGS (10)
  1. DOCETAXEL [Suspect]
     Route: 041
     Dates: start: 20091207, end: 20091207
  2. DOCETAXEL [Suspect]
     Route: 041
     Dates: start: 20100118, end: 20100118
  3. ERBITUX [Suspect]
     Indication: HEAD AND NECK CANCER
     Route: 042
     Dates: start: 20091207, end: 20091207
  4. ERBITUX [Suspect]
     Route: 042
     Dates: start: 20100125, end: 20100125
  5. FLUOROURACIL [Suspect]
     Indication: HEAD AND NECK CANCER
     Route: 041
     Dates: start: 20091207, end: 20091211
  6. FLUOROURACIL [Suspect]
     Route: 041
     Dates: start: 20100118, end: 20100118
  7. CISPLATIN [Suspect]
     Indication: HEAD AND NECK CANCER
     Route: 042
     Dates: start: 20091207, end: 20091207
  8. CISPLATIN [Suspect]
     Route: 042
     Dates: start: 20100118, end: 20100118
  9. CALCIUM [Concomitant]
     Route: 048
  10. LYSOMUCIL [Concomitant]
     Route: 048

REACTIONS (4)
  - DIARRHOEA [None]
  - HYPOTENSION [None]
  - HYPOVOLAEMIC SHOCK [None]
  - SYNCOPE [None]
